FAERS Safety Report 22027860 (Version 1)
Quarter: 2023Q1

REPORT INFORMATION
  Report Type: Spontaneous
  Country: GB (occurrence: GB)
  Receive Date: 20230223
  Receipt Date: 20230223
  Transmission Date: 20230418
  Serious: Yes (Other)
  Sender: FDA-Public Use
  Company Number: GB-MYLANLABS-2023M1019337

PATIENT
  Sex: Male

DRUGS (8)
  1. BACLOFEN [Suspect]
     Active Substance: BACLOFEN
     Indication: Epileptic encephalopathy
     Dosage: UNK
     Route: 065
  2. BACLOFEN [Suspect]
     Active Substance: BACLOFEN
     Indication: Movement disorder
  3. LEVETIRACETAM [Suspect]
     Active Substance: LEVETIRACETAM
     Indication: Epileptic encephalopathy
     Dosage: UNK
     Route: 065
  4. LEVETIRACETAM [Suspect]
     Active Substance: LEVETIRACETAM
     Indication: Movement disorder
  5. CLONIDINE [Suspect]
     Active Substance: CLONIDINE
     Indication: Epileptic encephalopathy
     Dosage: UNK
     Route: 065
  6. CLONIDINE [Suspect]
     Active Substance: CLONIDINE
     Indication: Movement disorder
  7. VIGABATRIN [Suspect]
     Active Substance: VIGABATRIN
     Indication: Epileptic encephalopathy
     Dosage: UNK
     Route: 065
  8. VIGABATRIN [Suspect]
     Active Substance: VIGABATRIN
     Indication: Movement disorder

REACTIONS (2)
  - Drug ineffective [Unknown]
  - Off label use [Unknown]
